FAERS Safety Report 7298087-4 (Version None)
Quarter: 2011Q1

REPORT INFORMATION
  Report Type: 
  Country: None (occurrence: None)
  Receive Date: 20110217
  Receipt Date: 20110208
  Transmission Date: 20110831
  Serious: Yes (Other)
  Sender: FDA-Public Use
  Company Number: PHHY2010MX43733

PATIENT
  Sex: Female

DRUGS (3)
  1. ACLASTA [Suspect]
     Dosage: 5MG/100ML YEARLY
     Route: 042
     Dates: start: 20091018
  2. ACLASTA [Suspect]
     Indication: OSTEOPOROSIS
     Dosage: 5 MG/100 ML YEARLY
     Route: 042
     Dates: start: 20081101
  3. ACLASTA [Suspect]
     Dosage: 5MG/100ML YEARLY
     Route: 042
     Dates: start: 20101206

REACTIONS (3)
  - FOOT FRACTURE [None]
  - HYPOAESTHESIA [None]
  - BLOOD PRESSURE INCREASED [None]
